FAERS Safety Report 17098878 (Version 3)
Quarter: 2019Q4

REPORT INFORMATION
  Report Type: Spontaneous
  Country: FR (occurrence: FR)
  Receive Date: 20191202
  Receipt Date: 20191213
  Transmission Date: 20200122
  Serious: Yes (Hospitalization)
  Sender: FDA-Public Use
  Company Number: FR-MYLANLABS-2019M1115159

PATIENT
  Age: 25 Day
  Sex: Male

DRUGS (4)
  1. LEVETIRACETAM. [Suspect]
     Active Substance: LEVETIRACETAM
     Indication: PRODUCT USED FOR UNKNOWN INDICATION
     Dosage: 3000 MILLIGRAM, QD (MATERNAL DOSE: 3000 MG QD)
     Route: 063
  2. LEVETIRACETAM. [Suspect]
     Active Substance: LEVETIRACETAM
     Indication: PRODUCT USED FOR UNKNOWN INDICATION
     Dosage: 300 MILLIGRAM, QD (MATERNAL DOSE: 3000 MG QD)
     Route: 064
  3. TOPIRAMATE. [Suspect]
     Active Substance: TOPIRAMATE
     Indication: PRODUCT USED FOR UNKNOWN INDICATION
     Dosage: 200 MILLIGRAM, QD (MATERNAL DOSE: 200 MG QD)
     Route: 063
  4. TOPIRAMATE. [Suspect]
     Active Substance: TOPIRAMATE
     Indication: PRODUCT USED FOR UNKNOWN INDICATION
     Dosage: 200 MILLIGRAM, QD (MATERNAL DOSE: 200 MG QD )
     Route: 064

REACTIONS (5)
  - Exposure via breast milk [Unknown]
  - Vomiting [Recovering/Resolving]
  - Sedation [Recovering/Resolving]
  - Foetal exposure during pregnancy [Recovered/Resolved]
  - Weight decreased [Recovering/Resolving]
